FAERS Safety Report 5859963-X (Version None)
Quarter: 2008Q3

REPORT INFORMATION
  Report Type: 
  Country: None (occurrence: None)
  Receive Date: 20080818
  Receipt Date: 20080509
  Transmission Date: 20090109
  Serious: No
  Sender: FDA-Public Use
  Company Number: WAES 0805USA02144

PATIENT
  Age: 83 Year
  Sex: Male

DRUGS (8)
  1. JANUVIA [Suspect]
     Indication: TYPE 2 DIABETES MELLITUS
     Dosage: DAILY/PO
     Route: 048
     Dates: start: 20080425, end: 20080503
  2. ACIPHEX [Concomitant]
  3. COREG [Concomitant]
  4. IMDUR [Concomitant]
  5. LIPITOR [Concomitant]
  6. PROSCAR [Concomitant]
  7. ALLOPURINOL [Concomitant]
  8. LEVOTHYROXINE SODIUM [Concomitant]

REACTIONS (2)
  - PRURITUS [None]
  - WRONG TECHNIQUE IN DRUG USAGE PROCESS [None]
